FAERS Safety Report 23630551 (Version 1)
Quarter: 2024Q1

REPORT INFORMATION
  Report Type: Spontaneous
  Country: US (occurrence: None)
  Receive Date: 20240314
  Receipt Date: 20240314
  Transmission Date: 20240410
  Serious: No
  Sender: FDA-Public Use
  Company Number: 2024A052492

PATIENT
  Sex: Female

DRUGS (1)
  1. FASENRA [Suspect]
     Active Substance: BENRALIZUMAB
     Route: 058
     Dates: start: 202308

REACTIONS (6)
  - Gastroenteritis viral [Unknown]
  - Steroid therapy [Unknown]
  - Malaise [Unknown]
  - Dizziness [Unknown]
  - Sinus disorder [Unknown]
  - Rash [Unknown]
